FAERS Safety Report 8314556-X (Version None)
Quarter: 2012Q1

REPORT INFORMATION
  Report Type: 
  Country: None (occurrence: None)
  Receive Date: 20120315
  Receipt Date: 20110527
  Transmission Date: 20120608
  Serious: Yes (Hospitalization, Other)
  Sender: FDA-Public Use
  Company Number: PHHY2011US40283

PATIENT
  Age: 49 Year
  Sex: Female

DRUGS (10)
  1. CELEXA [Concomitant]
  2. ZELLME [Concomitant]
  3. B-COMPLEX (VITAMIN B NOS) [Concomitant]
  4. GILENYA [Suspect]
     Indication: MULTIPLE SCLEROSIS
     Dosage: 0.5 MG, QD, ORAL
     Route: 048
     Dates: start: 20110510
  5. VITAMIN B12 [Concomitant]
  6. VITAMIN E [Concomitant]
  7. VISUMO [Concomitant]
  8. COLECALCIFEROL (COLECALCIFEROL) [Concomitant]
  9. WELLBUTRIN XL [Concomitant]
  10. LOVAZA [Concomitant]

REACTIONS (3)
  - MEMORY IMPAIRMENT [None]
  - FATIGUE [None]
  - BRADYCARDIA [None]
